FAERS Safety Report 18803504 (Version 1)
Quarter: 2021Q1

REPORT INFORMATION
  Report Type: Spontaneous
  Country: DE (occurrence: DE)
  Receive Date: 20210128
  Receipt Date: 20210128
  Transmission Date: 20210419
  Serious: Yes (Other)
  Sender: FDA-Public Use
  Company Number: DE-009507513-2101DEU011118

PATIENT
  Age: 64 Year
  Sex: Male

DRUGS (1)
  1. ZEPATIER [Suspect]
     Active Substance: ELBASVIR\GRAZOPREVIR
     Indication: HEPATITIS C
     Dosage: ONCE DAILY
     Route: 048

REACTIONS (2)
  - Lyme disease [Unknown]
  - Erythema [Unknown]

NARRATIVE: CASE EVENT DATE: 20210119
